FAERS Safety Report 6207202-2 (Version None)
Quarter: 2009Q2

REPORT INFORMATION
  Report Type: 
  Country: None (occurrence: None)
  Receive Date: 20090522
  Receipt Date: 20080529
  Transmission Date: 20091009
  Serious: Yes (Other)
  Sender: FDA-Public Use
  Company Number: 48854

PATIENT
  Age: 73 Year
  Sex: Female
  Weight: 58.514 kg

DRUGS (3)
  1. PAMIDRONATE DISODIUM [Suspect]
     Indication: OSTEOPOROSIS
     Dosage: 30MG IV ONE TIME DOSE
     Route: 042
     Dates: start: 20070829
  2. ESTRACE [Concomitant]
  3. LEVOTHYROXINE SODIUM [Concomitant]

REACTIONS (2)
  - PAIN [None]
  - PAIN IN JAW [None]
